FAERS Safety Report 11207798 (Version 2)
Quarter: 2015Q3

REPORT INFORMATION
  Report Type: Report from Study
  Country: US (occurrence: US)
  Receive Date: 20150622
  Receipt Date: 20150807
  Transmission Date: 20151125
  Serious: No
  Sender: FDA-Public Use
  Company Number: US-ABBVIE-15P-163-1387812-00

PATIENT
  Sex: Male

DRUGS (1)
  1. VIEKIRA PAK [Suspect]
     Active Substance: DASABUVIR\OMBITASVIR\PARITAPREVIR\RITONAVIR
     Indication: HEPATITIS C
     Dosage: 2 PINK TABLETS IN MORNING, 1 BEIGE TABLET TWICE A DAY IN MORNING, EVENING
     Route: 048
     Dates: start: 201504

REACTIONS (4)
  - Fatigue [Unknown]
  - Irritability [Unknown]
  - Agitation [Unknown]
  - Headache [Unknown]
